FAERS Safety Report 8792944 (Version 1)
Quarter: 2012Q4

REPORT INFORMATION
  Report Type: 
  Country: US (occurrence: US)
  Receive Date: 20120918
  Receipt Date: 20120918
  Transmission Date: 20130627
  Serious: No
  Sender: FDA-Public Use
  Company Number: US-ASTRAZENECA-2012SE70933

PATIENT
  Age: 29 Year
  Sex: Male
  Weight: 99.8 kg

DRUGS (4)
  1. SYMBICORT [Suspect]
     Indication: ASTHMA
     Dosage: 80 UG BID
     Route: 055
     Dates: start: 2008
  2. RHINOCORT [Suspect]
     Indication: ASTHMA
     Route: 045
  3. KEPTRA XR [Concomitant]
     Indication: CONVULSION
  4. ALBUTEROL [Concomitant]
     Indication: ASTHMA

REACTIONS (3)
  - Fungal infection [Unknown]
  - Off label use [Unknown]
  - Drug dose omission [Unknown]
